FAERS Safety Report 20741045 (Version 1)
Quarter: 2022Q2

REPORT INFORMATION
  Report Type: Spontaneous
  Country: US (occurrence: US)
  Receive Date: 20220422
  Receipt Date: 20220422
  Transmission Date: 20220721
  Serious: No
  Sender: FDA-Public Use
  Company Number: US-LUNDBECK-DKLU3046833

PATIENT
  Age: 54 Year
  Sex: Female

DRUGS (1)
  1. VYEPTI [Suspect]
     Active Substance: EPTINEZUMAB-JJMR
     Indication: Product used for unknown indication
     Route: 041

REACTIONS (6)
  - Swelling face [Unknown]
  - Lip swelling [Unknown]
  - Dizziness [Unknown]
  - Pruritus [Unknown]
  - Nasal congestion [Unknown]
  - Headache [Unknown]
